FAERS Safety Report 11347544 (Version 1)
Quarter: 2015Q3

REPORT INFORMATION
  Report Type: Spontaneous
  Country: US (occurrence: US)
  Receive Date: 20150803
  Receipt Date: 20150803
  Transmission Date: 20151125
  Serious: No
  Sender: FDA-Public Use
  Company Number: US-ELI_LILLY_AND_COMPANY-US201108001192

PATIENT
  Age: 56 Year
  Sex: Female

DRUGS (1)
  1. ZYPREXA [Suspect]
     Active Substance: OLANZAPINE
     Indication: SCHIZOAFFECTIVE DISORDER
     Dosage: 10 MG, QD
     Dates: start: 1990

REACTIONS (4)
  - Middle insomnia [Unknown]
  - Flatulence [Unknown]
  - Vomiting [Unknown]
  - Dysgeusia [Unknown]
